FAERS Safety Report 13069642 (Version 1)
Quarter: 2016Q4

REPORT INFORMATION
  Report Type: Report from Study
  Country: US (occurrence: US)
  Receive Date: 20161228
  Receipt Date: 20161228
  Transmission Date: 20170207
  Serious: Yes (Death, Hospitalization)
  Sender: FDA-Public Use
  Company Number: US-MALLINCKRODT-T201606261

PATIENT
  Age: 74 Year
  Sex: Male

DRUGS (1)
  1. REPOSITORY CORTICOTROPIN INJECTION [Suspect]
     Active Substance: CORTICOTROPIN
     Indication: RHEUMATOID ARTHRITIS
     Dosage: 80 U/ 1 ML, ONCE WEEKLY
     Route: 030
     Dates: start: 20161020, end: 20161129

REACTIONS (6)
  - Cardiac failure congestive [Fatal]
  - Pneumonia [Recovering/Resolving]
  - Multiple organ dysfunction syndrome [Fatal]
  - Fall [Fatal]
  - Malaise [Not Recovered/Not Resolved]
  - Arthritis [Fatal]

NARRATIVE: CASE EVENT DATE: 201611
